FAERS Safety Report 6119070-8 (Version None)
Quarter: 2009Q1

REPORT INFORMATION
  Report Type: 
  Country: None (occurrence: None)
  Receive Date: 20090316
  Receipt Date: 20090225
  Transmission Date: 20090719
  Serious: Yes (Other)
  Sender: FDA-Public Use
  Company Number: US-BAYER-200831552NA

PATIENT
  Age: 39 Year
  Sex: Female

DRUGS (8)
  1. MAGNEVIST [Suspect]
     Indication: NUCLEAR MAGNETIC RESONANCE IMAGING
     Dates: start: 20060425, end: 20060425
  2. GADOLINIUM BASED CONTRAST AGENT (GBCA) [Suspect]
     Indication: NUCLEAR MAGNETIC RESONANCE IMAGING
     Dates: start: 20030828, end: 20030828
  3. VICODIN [Concomitant]
     Indication: PAIN
  4. FERROUS SULFATE TAB [Concomitant]
     Indication: IRON DEFICIENCY
     Dates: start: 20080101
  5. PROGRAF [Concomitant]
     Indication: PROPHYLAXIS AGAINST TRANSPLANT REJECTION
     Dates: start: 20060228, end: 20060510
  6. LABETALOL HCL [Concomitant]
     Indication: HYPERTENSION
     Dates: start: 20060426
  7. PREDNISONE [Concomitant]
     Indication: PROPHYLAXIS AGAINST TRANSPLANT REJECTION
     Dates: start: 20060228, end: 20060928
  8. RENA-VITE [Concomitant]
     Indication: MEDICAL DIET

REACTIONS (10)
  - ANXIETY [None]
  - EMOTIONAL DISTRESS [None]
  - FIBROSIS [None]
  - GENERAL PHYSICAL HEALTH DETERIORATION [None]
  - INJURY [None]
  - MOBILITY DECREASED [None]
  - NEPHROGENIC SYSTEMIC FIBROSIS [None]
  - PAIN [None]
  - SKIN OEDEMA [None]
  - SKIN TIGHTNESS [None]
